FAERS Safety Report 21923217 (Version 1)
Quarter: 2023Q1

REPORT INFORMATION
  Report Type: Report from Study
  Country: US (occurrence: US)
  Receive Date: 20230129
  Receipt Date: 20230129
  Transmission Date: 20230418
  Serious: Yes (Hospitalization)
  Sender: FDA-Public Use
  Company Number: US-ABBVIE-4285082

PATIENT
  Sex: Female
  Weight: 50 kg

DRUGS (1)
  1. HUMIRA [Suspect]
     Active Substance: ADALIMUMAB
     Indication: Psoriatic arthropathy
     Route: 058
     Dates: start: 2002, end: 202210

REACTIONS (7)
  - Rash [Not Recovered/Not Resolved]
  - Skin burning sensation [Recovering/Resolving]
  - Swelling [Recovering/Resolving]
  - Therapeutic product effect decreased [Unknown]
  - Dermatitis atopic [Not Recovered/Not Resolved]
  - Skin fissures [Recovering/Resolving]
  - Pain [Recovering/Resolving]

NARRATIVE: CASE EVENT DATE: 20220101
